FAERS Safety Report 6347160-3 (Version None)
Quarter: 2009Q3

REPORT INFORMATION
  Report Type: 
  Country: None (occurrence: None)
  Receive Date: 20090910
  Receipt Date: 20090826
  Transmission Date: 20100115
  Serious: Yes (Other)
  Sender: FDA-Public Use
  Company Number: CA-ROCHE-652937

PATIENT

DRUGS (10)
  1. PEG-INTERFERON ALFA 2A (RO 25-8310) [Suspect]
     Indication: HEPATITIS C
     Route: 058
     Dates: start: 20081112, end: 20090729
  2. PEG-INTERFERON ALFA 2A (RO 25-8310) [Suspect]
     Route: 058
     Dates: start: 20090729, end: 20090806
  3. PEG-INTERFERON ALFA 2A (RO 25-8310) [Suspect]
     Route: 058
     Dates: start: 20090806, end: 20090812
  4. RIBAVIRIN [Suspect]
     Indication: HEPATITIS C
     Route: 048
     Dates: start: 20081112, end: 20090812
  5. VASOTEC [Concomitant]
     Indication: HYPERTENSION
     Route: 048
     Dates: start: 20090601
  6. NAPROSYN [Concomitant]
     Route: 048
     Dates: start: 20081101
  7. SEROQUEL [Concomitant]
     Indication: INSOMNIA
     Dosage: FREQUENCY: QHS EVERY HOUR OF SLEEP OR EVERY NIGHT
     Route: 048
     Dates: start: 20080415
  8. SEROQUEL [Concomitant]
     Dosage: FREQUENCY: QHS
     Route: 048
  9. EFFEXOR XR [Concomitant]
     Indication: DEPRESSION
     Dosage: CO-INDICATION: ANXIETY
     Route: 048
     Dates: start: 20080415
  10. EFFEXOR XR [Concomitant]
     Route: 048
     Dates: start: 20080806

REACTIONS (2)
  - HYPERTENSION [None]
  - PARANOIA [None]
